FAERS Safety Report 6818805-6 (Version None)
Quarter: 2010Q3

REPORT INFORMATION
  Report Type: 
  Country: None (occurrence: None)
  Receive Date: 20100706
  Receipt Date: 20100622
  Transmission Date: 20110219
  Serious: Yes (Life-Threatening)
  Sender: FDA-Public Use
  Company Number: GB-MYLANLABS-2010S1011123

PATIENT
  Age: 15 Year
  Sex: Female

DRUGS (1)
  1. FLUOXETINE [Suspect]
     Indication: DEPRESSION
     Route: 048
     Dates: start: 20100520, end: 20100531

REACTIONS (4)
  - AGITATION [None]
  - INTENTIONAL OVERDOSE [None]
  - POOR QUALITY SLEEP [None]
  - SUICIDAL IDEATION [None]
